FAERS Safety Report 6794771-7 (Version None)
Quarter: 2010Q2

REPORT INFORMATION
  Report Type: 
  Country: None (occurrence: None)
  Receive Date: 20100625
  Receipt Date: 20100617
  Transmission Date: 20101027
  Serious: Yes (Life-Threatening, Hospitalization, Other)
  Sender: FDA-Public Use
  Company Number: FR-BRISTOL-MYERS SQUIBB COMPANY-15160096

PATIENT
  Age: 73 Year
  Sex: Female

DRUGS (19)
  1. GLUCOPHAGE [Suspect]
     Indication: TYPE 2 DIABETES MELLITUS
     Route: 048
     Dates: end: 20100429
  2. ATENOLOL [Suspect]
     Indication: HYPERTENSION
     Route: 048
     Dates: end: 20100429
  3. TOPALGIC [Suspect]
     Indication: SCIATICA
     Dosage: 200MG:21APR2010-27APR2010:6(D) 400MG:28APR2010-29APR2010:1(D)
     Route: 048
     Dates: start: 20100421, end: 20100429
  4. ZELITREX [Suspect]
     Indication: HERPES ZOSTER
     Route: 048
     Dates: start: 20100429, end: 20100429
  5. GABAPENTINE [Suspect]
     Indication: NEURALGIA
     Route: 048
     Dates: start: 20100428, end: 20100429
  6. LASIX [Suspect]
     Indication: HYPERTENSION
     Dosage: 40MG TABS
     Route: 048
     Dates: end: 20100429
  7. TENSTATEN [Suspect]
     Indication: HYPERTENSION
     Dosage: 50 MG CAPS
     Route: 048
     Dates: end: 20100429
  8. ALLOPURINOL [Suspect]
     Route: 048
     Dates: end: 20100429
  9. ACTONEL [Suspect]
     Indication: OSTEOPOROSIS
     Dosage: 35 MG TABS; 0.1429 DF
     Route: 048
     Dates: end: 20100429
  10. CALCIDOSE [Suspect]
     Indication: OSTEOPOROSIS
     Route: 048
     Dates: end: 20100429
  11. VITAMIN D [Suspect]
     Indication: OSTEOPOROSIS
     Route: 048
     Dates: end: 20100429
  12. TARDYFERON [Suspect]
     Dosage: 80MG TABS
     Route: 048
     Dates: end: 20100429
  13. MINISINTROM [Suspect]
     Route: 048
     Dates: end: 20100429
  14. HUMALOG [Concomitant]
  15. COVERSYL [Concomitant]
     Dosage: TABS
  16. LANTUS [Concomitant]
  17. INSULIN LISPRO [Concomitant]
     Dosage: 1 DF= 25/100 UI/ML; SUSPENSION FOR INJ
  18. INIPOMP [Concomitant]
  19. PREDNISONE [Concomitant]
     Dosage: 1 DF= 13 MCI/D

REACTIONS (8)
  - COMA [None]
  - FALL [None]
  - HERPES ZOSTER [None]
  - PNEUMONIA ASPIRATION [None]
  - RENAL FAILURE ACUTE [None]
  - RESPIRATORY DISTRESS [None]
  - SCIATICA [None]
  - SHOCK [None]
